FAERS Safety Report 5703733-X (Version None)
Quarter: 2008Q2

REPORT INFORMATION
  Report Type: 
  Country: None (occurrence: None)
  Receive Date: 20080413
  Receipt Date: 20080404
  Transmission Date: 20081010
  Serious: Yes (Hospitalization)
  Sender: FDA-Public Use
  Company Number: PHRM2008FR01223

PATIENT
  Age: 58 Year
  Sex: Male

DRUGS (6)
  1. PREVISCAN [Suspect]
     Dosage: 0.5 DF, QD
     Route: 048
  2. PREVISCAN [Suspect]
     Dosage: 1 DF, QD
     Route: 048
     Dates: start: 20080204, end: 20080207
  3. CORDARONE [Concomitant]
     Route: 048
  4. LASILIX [Concomitant]
     Route: 048
  5. LESCOL [Suspect]
     Route: 048
  6. KENZEN [Concomitant]
     Route: 048

REACTIONS (6)
  - ANAEMIA [None]
  - DRUG INTERACTION [None]
  - HAEMATOMA [None]
  - INTERNATIONAL NORMALISED RATIO INCREASED [None]
  - PAIN IN EXTREMITY [None]
  - PROTHROMBIN TIME RATIO DECREASED [None]
